FAERS Safety Report 15948692 (Version 2)
Quarter: 2019Q1

REPORT INFORMATION
  Report Type: Report from Study
  Country: US (occurrence: US)
  Receive Date: 20190211
  Receipt Date: 20190227
  Transmission Date: 20190417
  Serious: Yes (Other)
  Sender: FDA-Public Use
  Company Number: US-SHIRE-US201904024

PATIENT
  Sex: Male
  Weight: 79.37 kg

DRUGS (3)
  1. VYVANSE [Suspect]
     Active Substance: LISDEXAMFETAMINE DIMESYLATE
     Indication: SOCIAL ANXIETY DISORDER
     Dosage: 70 MILLILITER, 1X/DAY:QD
     Route: 048
  2. VYVANSE [Suspect]
     Active Substance: LISDEXAMFETAMINE DIMESYLATE
     Indication: DEPRESSION
  3. VYVANSE [Suspect]
     Active Substance: LISDEXAMFETAMINE DIMESYLATE
     Indication: BIPOLAR DISORDER
     Dosage: 70 MILLIGRAM, 1X/DAY:QD
     Route: 048
     Dates: end: 2019

REACTIONS (7)
  - Inability to afford medication [Unknown]
  - Suicidal ideation [Not Recovered/Not Resolved]
  - Visual impairment [Not Recovered/Not Resolved]
  - Inappropriate schedule of product administration [Recovered/Resolved]
  - Accident [Unknown]
  - Suicidal behaviour [Recovered/Resolved]
  - Off label use [Not Recovered/Not Resolved]

NARRATIVE: CASE EVENT DATE: 2019
